FAERS Safety Report 7167435-8 (Version None)
Quarter: 2010Q4

REPORT INFORMATION
  Report Type: 
  Country: None (occurrence: None)
  Receive Date: 20101216
  Receipt Date: 20091215
  Transmission Date: 20110411
  Serious: No
  Sender: FDA-Public Use
  Company Number: A0835166A

PATIENT
  Age: 45 Year
  Sex: Female

DRUGS (1)
  1. NICOTINE POLACRILEX [Suspect]

REACTIONS (3)
  - MALAISE [None]
  - SENSATION OF FOREIGN BODY [None]
  - SUFFOCATION FEELING [None]
